FAERS Safety Report 7377977-8 (Version None)
Quarter: 2011Q1

REPORT INFORMATION
  Report Type: 
  Country: None (occurrence: None)
  Receive Date: 20110328
  Receipt Date: 20110323
  Transmission Date: 20110831
  Serious: Yes (Life-Threatening, Hospitalization)
  Sender: FDA-Public Use
  Company Number: DK-ABBOTT-11P-044-0713019-00

PATIENT
  Sex: Male
  Weight: 80 kg

DRUGS (1)
  1. KLACID [Suspect]
     Indication: INFECTION
     Route: 048
     Dates: start: 20110126

REACTIONS (3)
  - DELIRIUM [None]
  - HALLUCINATION [None]
  - PERSONALITY CHANGE [None]
